FAERS Safety Report 5011798-6 (Version None)
Quarter: 2006Q2

REPORT INFORMATION
  Report Type: 
  Country: None (occurrence: None)
  Receive Date: 20060524
  Receipt Date: 20060524
  Transmission Date: 20061013
  Serious: No
  Sender: FDA-Public Use
  Company Number: None

PATIENT
  Sex: Male
  Weight: 110 kg

DRUGS (2)
  1. SPIRONOLACTONE [Suspect]
     Indication: CARDIAC FAILURE
     Dosage: 25 MG DAILY PO
     Route: 048
     Dates: start: 20051210, end: 20051222
  2. LISINOPRIL [Suspect]
     Indication: CARDIAC FAILURE
     Dosage: 40 MG DAILY PO
     Route: 048
     Dates: start: 20010109, end: 20060214

REACTIONS (4)
  - CARDIAC FAILURE [None]
  - CONDITION AGGRAVATED [None]
  - DIZZINESS [None]
  - RENAL FAILURE CHRONIC [None]
